FAERS Safety Report 18924087 (Version 1)
Quarter: 2021Q1

REPORT INFORMATION
  Report Type: Spontaneous
  Country: BR (occurrence: BR)
  Receive Date: 20210222
  Receipt Date: 20210222
  Transmission Date: 20210420
  Serious: Yes (Congenital Anomaly)
  Sender: FDA-Public Use
  Company Number: BR-BAYER-2021-070683

PATIENT
  Sex: Female

DRUGS (1)
  1. YASMIN [Suspect]
     Active Substance: DROSPIRENONE\ETHINYL ESTRADIOL
     Route: 064

REACTIONS (4)
  - Heart disease congenital [None]
  - Exposure during pregnancy [None]
  - Cardiac murmur [None]
  - Foot deformity [None]
